FAERS Safety Report 6423967-9 (Version None)
Quarter: 2009Q4

REPORT INFORMATION
  Report Type: 
  Country: None (occurrence: None)
  Receive Date: 20091102
  Receipt Date: 20091028
  Transmission Date: 20100525
  Serious: Yes (Death, Hospitalization, Other)
  Sender: FDA-Public Use
  Company Number: PHHY2009BR11601

PATIENT

DRUGS (5)
  1. STALEVO 100 [Suspect]
     Indication: PARKINSON'S DISEASE
     Dosage: 100/25/200
     Route: 048
  2. STALEVO 100 [Suspect]
     Dosage: 50/12.5/200
     Route: 048
  3. MEMANTINE HCL [Concomitant]
     Indication: PARKINSON'S DISEASE
     Dosage: 1 TABLET DAILY
     Route: 048
  4. CONCOR [Suspect]
     Indication: BLOOD PRESSURE INCREASED
     Dosage: 1 TABLET DAILY
     Route: 048
  5. HYZAAR [Concomitant]
     Indication: NERVOUS SYSTEM DISORDER
     Dosage: 1 TABLET DAILY
     Route: 048

REACTIONS (6)
  - DIALYSIS [None]
  - DYSPHAGIA [None]
  - GASTROINTESTINAL TUBE INSERTION [None]
  - MUSCULOSKELETAL STIFFNESS [None]
  - PARKINSON'S DISEASE [None]
  - RENAL FAILURE [None]
